FAERS Safety Report 16959973 (Version 1)
Quarter: 2019Q4

REPORT INFORMATION
  Report Type: Spontaneous
  Country: US (occurrence: US)
  Receive Date: 20191025
  Receipt Date: 20191025
  Transmission Date: 20200122
  Serious: No
  Sender: FDA-Public Use
  Company Number: US-SUNOVION-2019SUN004328

PATIENT
  Age: 63 Year
  Sex: Female

DRUGS (1)
  1. ARCAPTA NEOHALER [Suspect]
     Active Substance: INDACATEROL MALEATE
     Dosage: 75 ?G
     Route: 055

REACTIONS (1)
  - Tongue haemorrhage [Unknown]
